FAERS Safety Report 12721428 (Version 1)
Quarter: 2016Q3

REPORT INFORMATION
  Report Type: Spontaneous
  Country: FR (occurrence: FR)
  Receive Date: 20160907
  Receipt Date: 20160907
  Transmission Date: 20161109
  Serious: Yes (Other)
  Sender: FDA-Public Use
  Company Number: FR-PFIZER INC-2016370262

PATIENT
  Age: 24 Year
  Sex: Female

DRUGS (1)
  1. PREGABALIN. [Suspect]
     Active Substance: PREGABALIN
     Indication: GENERALISED ANXIETY DISORDER
     Dosage: 100 MG, 3X/DAY
     Dates: start: 2012

REACTIONS (10)
  - Drug dependence [Unknown]
  - Hyperhidrosis [Unknown]
  - Insomnia [Unknown]
  - Asthenia [Unknown]
  - Intentional product misuse [Unknown]
  - Tremor [Unknown]
  - Drug tolerance [Unknown]
  - Nicotine dependence [Unknown]
  - Withdrawal syndrome [Unknown]
  - Suicidal ideation [Unknown]
